FAERS Safety Report 8384465-9 (Version None)
Quarter: 2012Q2

REPORT INFORMATION
  Report Type: 
  Country: None (occurrence: None)
  Receive Date: 20120524
  Receipt Date: 20120518
  Transmission Date: 20120825
  Serious: Yes (Other)
  Sender: FDA-Public Use
  Company Number: BR-GLAXOSMITHKLINE-B0803356A

PATIENT
  Age: 51 Year

DRUGS (1)
  1. PROPAFENONE HCL [Suspect]
     Indication: ARRHYTHMIA
     Route: 065
     Dates: start: 20050101

REACTIONS (3)
  - RENAL CANCER [None]
  - IMPAIRED WORK ABILITY [None]
  - MALAISE [None]
